FAERS Safety Report 12432884 (Version 1)
Quarter: 2016Q2

REPORT INFORMATION
  Report Type: Spontaneous
  Country: US (occurrence: None)
  Receive Date: 20160602
  Receipt Date: 20160602
  Transmission Date: 20160815
  Serious: Yes (Death)
  Sender: FDA-Public Use
  Company Number: None

PATIENT
  Age: 73 Year
  Sex: Male
  Weight: 108 kg

DRUGS (20)
  1. ZOLOFT [Concomitant]
     Active Substance: SERTRALINE HYDROCHLORIDE
  2. TOBREX [Concomitant]
     Active Substance: TOBRAMYCIN
  3. LIPITOR [Concomitant]
     Active Substance: ATORVASTATIN CALCIUM
  4. APIXABAN [Suspect]
     Active Substance: APIXABAN
     Indication: ATRIAL FIBRILLATION
     Route: 048
     Dates: start: 20121106, end: 20160224
  5. DOCUSATE SODIUM. [Concomitant]
     Active Substance: DOCUSATE SODIUM
  6. LASIX [Concomitant]
     Active Substance: FUROSEMIDE
  7. DIGOXIN. [Concomitant]
     Active Substance: DIGOXIN
  8. LEVOTHYROXINE. [Concomitant]
     Active Substance: LEVOTHYROXINE
  9. AZITHROMYCIN ANHYDROUS. [Concomitant]
     Active Substance: AZITHROMYCIN ANHYDROUS
  10. MIRALAX [Concomitant]
     Active Substance: POLYETHYLENE GLYCOL 3350
  11. RESTORIL [Concomitant]
     Active Substance: TEMAZEPAM
  12. CARBOXYMETHYLCELLULOSE 1% OPHTHALMIC SOLUTION [Concomitant]
  13. POTASSIUM CHLORIDE SA [Concomitant]
  14. EPLERENONE. [Concomitant]
     Active Substance: EPLERENONE
  15. ZOSYN [Concomitant]
     Active Substance: PIPERACILLIN SODIUM\TAZOBACTAM SODIUM
  16. COAL TAR-SALICYLIC ACID [Concomitant]
  17. ASA [Concomitant]
     Active Substance: ASPIRIN
  18. ROBITUSSIN (GUAIFENESIN) [Concomitant]
     Active Substance: GUAIFENESIN
  19. MULTIVITAMIN [Concomitant]
     Active Substance: VITAMINS
  20. COREG [Concomitant]
     Active Substance: CARVEDILOL

REACTIONS (18)
  - Fall [None]
  - Blood pressure systolic decreased [None]
  - Cough [None]
  - Gait disturbance [None]
  - Unevaluable event [None]
  - Melaena [None]
  - Joint injury [None]
  - Bacteriuria [None]
  - Extra dose administered [None]
  - Troponin increased [None]
  - Pulmonary embolism [None]
  - Asthenia [None]
  - Cystitis [None]
  - Pneumonitis [None]
  - Ventricular tachycardia [None]
  - Polyuria [None]
  - Dyspnoea [None]
  - Pyuria [None]

NARRATIVE: CASE EVENT DATE: 20160224
